FAERS Safety Report 23098692 (Version 1)
Quarter: 2023Q4

REPORT INFORMATION
  Report Type: Other
  Country: CA (occurrence: CA)
  Receive Date: 20231024
  Receipt Date: 20231024
  Transmission Date: 20240110
  Serious: Yes (Hospitalization, Other)
  Sender: FDA-Public Use
  Company Number: CA-CELLTRION INC.-2023CA020142

PATIENT

DRUGS (3)
  1. BEVACIZUMAB [Suspect]
     Active Substance: BEVACIZUMAB
     Indication: Lung neoplasm malignant
     Dosage: 10 MG/KG
     Route: 065
  2. CISPLATIN [Concomitant]
     Active Substance: CISPLATIN
     Indication: Small cell lung cancer
     Dosage: CYCLICAL
  3. DOCETAXEL [Concomitant]
     Active Substance: DOCETAXEL
     Indication: Small cell lung cancer
     Dosage: CYCLICAL

REACTIONS (2)
  - Acute kidney injury [Recovering/Resolving]
  - Thrombotic microangiopathy [Recovering/Resolving]
